FAERS Safety Report 12312280 (Version 1)
Quarter: 2016Q2

REPORT INFORMATION
  Report Type: Spontaneous
  Country: AU (occurrence: AU)
  Receive Date: 20160428
  Receipt Date: 20160428
  Transmission Date: 20160815
  Serious: Yes (Hospitalization)
  Sender: FDA-Public Use
  Company Number: AU-009507513-1604AUS014831

PATIENT
  Age: 43 Year
  Sex: Male

DRUGS (3)
  1. RIBAVIRIN. [Suspect]
     Active Substance: RIBAVIRIN
     Dosage: ONE IN THE MORNING (200 MG) AND TWO AT NIGHT
  2. VIEKIRA PAK [Suspect]
     Active Substance: DASABUVIR\OMBITASVIR\PARITAPREVIR\RITONAVIR
     Dosage: UNK
     Route: 048
     Dates: start: 20151113
  3. RIBAVIRIN. [Suspect]
     Active Substance: RIBAVIRIN
     Dosage: UNK
     Route: 048
     Dates: start: 20151113

REACTIONS (9)
  - Weight decreased [Unknown]
  - Asthenia [Unknown]
  - Headache [Unknown]
  - Drug dose omission [Unknown]
  - Fatigue [Unknown]
  - Agitated depression [Unknown]
  - Pain [Unknown]
  - Malnutrition [Unknown]
  - Vomiting [Unknown]

NARRATIVE: CASE EVENT DATE: 20151224
